FAERS Safety Report 21740966 (Version 1)
Quarter: 2022Q4

REPORT INFORMATION
  Report Type: Report from Study
  Country: US (occurrence: US)
  Receive Date: 20221216
  Receipt Date: 20221216
  Transmission Date: 20230112
  Serious: Yes (Death, Other)
  Sender: FDA-Public Use
  Company Number: US-PFIZER INC-202201375091

PATIENT
  Age: 54 Year
  Sex: Male

DRUGS (2)
  1. BRAFTOVI [Suspect]
     Active Substance: ENCORAFENIB
     Dosage: 6 DF, DAILY (6 CAPSULE DAILY)
  2. MEKTOVI [Suspect]
     Active Substance: BINIMETINIB
     Dosage: 3 DF, 2X/DAY (3 TABLETS EVERY 12 HOURS)

REACTIONS (1)
  - Death [Fatal]
